FAERS Safety Report 15343735 (Version 1)
Quarter: 2018Q3

REPORT INFORMATION
  Report Type: Spontaneous
  Country: FR (occurrence: FR)
  Receive Date: 20180903
  Receipt Date: 20180903
  Transmission Date: 20181010
  Serious: Yes (Other)
  Sender: FDA-Public Use
  Company Number: FR-ASTRAZENECA-2018SE85280

PATIENT
  Sex: Female

DRUGS (3)
  1. FASLODEX [Suspect]
     Active Substance: FULVESTRANT
     Indication: BREAST CANCER FEMALE
     Route: 030
     Dates: start: 201712
  2. IBRANCE [Suspect]
     Active Substance: PALBOCICLIB
     Route: 048
  3. DECAPEPTYL [Suspect]
     Active Substance: TRIPTORELIN
     Route: 065

REACTIONS (2)
  - Procedural pain [Recovered/Resolved]
  - Interventional procedure [Recovered/Resolved]
